FAERS Safety Report 5500816-4 (Version None)
Quarter: 2007Q4

REPORT INFORMATION
  Report Type: 
  Country: None (occurrence: None)
  Receive Date: 20071029
  Receipt Date: 20071022
  Transmission Date: 20080405
  Serious: Yes (Life-Threatening, Hospitalization, Other)
  Sender: FDA-Public Use
  Company Number: B0441883A

PATIENT
  Age: 33 Year
  Sex: Female

DRUGS (7)
  1. PAROXETINE HCL [Suspect]
     Indication: DRUG USE FOR UNKNOWN INDICATION
     Route: 065
     Dates: start: 20050928, end: 20060728
  2. CLOZAPINE [Suspect]
     Indication: SCHIZOPHRENIA
     Route: 048
     Dates: start: 20020516, end: 20050927
  3. VALPROATE SODIUM [Suspect]
     Indication: DRUG USE FOR UNKNOWN INDICATION
  4. ZAPONEX [Suspect]
     Indication: SCHIZOPHRENIA
     Dosage: 425MG PER DAY
     Route: 048
     Dates: start: 20060731
  5. AMISULPRIDE [Concomitant]
     Route: 065
     Dates: start: 20050803
  6. SCOPOLAMINE [Concomitant]
     Route: 065
     Dates: start: 20050803
  7. SENNA GLYCOSIDE [Concomitant]
     Route: 065

REACTIONS (4)
  - IDIOPATHIC THROMBOCYTOPENIC PURPURA [None]
  - SOMNOLENCE [None]
  - TACHYCARDIA [None]
  - THROMBOCYTOPENIA [None]
